FAERS Safety Report 24827781 (Version 1)
Quarter: 2025Q1

REPORT INFORMATION
  Report Type: Spontaneous
  Country: US (occurrence: US)
  Receive Date: 20250109
  Receipt Date: 20250109
  Transmission Date: 20250409
  Serious: No
  Sender: BOEHRINGER INGELHEIM
  Company Number: US-BoehringerIngelheim-2025-BI-000524

PATIENT

DRUGS (2)
  1. OFEV [Suspect]
     Active Substance: NINTEDANIB
     Indication: Product used for unknown indication
  2. ESBRIET [Concomitant]
     Active Substance: PIRFENIDONE
     Indication: Product used for unknown indication

REACTIONS (2)
  - Gastrointestinal disorder [Unknown]
  - Liver disorder [Unknown]
